FAERS Safety Report 8814358 (Version 4)
Quarter: 2013Q2

REPORT INFORMATION
  Report Type: Spontaneous
  Country: US (occurrence: US)
  Receive Date: 20120928
  Receipt Date: 20130607
  Transmission Date: 20140414
  Serious: Yes (Other)
  Sender: FDA-Public Use
  Company Number: US-009507513-1208USA007618

PATIENT
  Age: 73 Year
  Sex: Female

DRUGS (5)
  1. VICTRELIS [Suspect]
     Indication: HEPATITIS C
     Dosage: UNK
     Route: 048
     Dates: start: 20120722, end: 20130501
  2. RIBASPHERE [Suspect]
     Indication: HEPATITIS C
     Dosage: 1000 MG, QD
     Dates: start: 20120623, end: 20130522
  3. RIBASPHERE [Suspect]
     Dosage: 800 MG, QD
     Dates: start: 2012
  4. RIBASPHERE [Suspect]
     Dosage: 600 MG 2 IN THE MORNING AND 2 AT NIGHT
     Dates: start: 2012
  5. PEGASYS [Suspect]
     Indication: HEPATITIS C
     Dosage: UNK
     Dates: start: 20120623, end: 20130522

REACTIONS (13)
  - Transfusion [Unknown]
  - Transfusion [Unknown]
  - Abdominal discomfort [Unknown]
  - Haemoglobin decreased [Recovering/Resolving]
  - Cough [Unknown]
  - Asthenia [Unknown]
  - Cough [Unknown]
  - Rash [Unknown]
  - Fatigue [Unknown]
  - Cough [Unknown]
  - Haemoglobin decreased [Unknown]
  - Asthenia [Unknown]
  - Haemoglobin decreased [Unknown]
